FAERS Safety Report 5926639-X (Version None)
Quarter: 2008Q4

REPORT INFORMATION
  Report Type: 
  Country: None (occurrence: None)
  Receive Date: 20081022
  Receipt Date: 20081014
  Transmission Date: 20090506
  Serious: Yes (Other)
  Sender: FDA-Public Use
  Company Number: D0058789A

PATIENT
  Age: 67 Year
  Sex: Male

DRUGS (6)
  1. REQUIP [Suspect]
     Indication: PARKINSON'S DISEASE
     Dosage: 8MG PER DAY
     Route: 048
     Dates: start: 20080701
  2. MADOPAR [Suspect]
     Route: 065
  3. AZILECT [Concomitant]
     Route: 065
  4. PK-MERZ [Concomitant]
     Route: 065
  5. ENTACAPONE [Concomitant]
     Route: 065
  6. SPIRONOLACTONE [Concomitant]
     Route: 065

REACTIONS (3)
  - DYSKINESIA [None]
  - EPISTAXIS [None]
  - THROMBOCYTOPENIA [None]
